FAERS Safety Report 20884083 (Version 1)
Quarter: 2022Q2

REPORT INFORMATION
  Report Type: Spontaneous
  Country: US (occurrence: None)
  Receive Date: 20220526
  Receipt Date: 20220526
  Transmission Date: 20220720
  Serious: Yes (Life-Threatening)
  Sender: FDA-Public Use
  Company Number: None

PATIENT
  Sex: Male

DRUGS (1)
  1. SPRAVATO [Suspect]
     Active Substance: ESKETAMINE
     Dosage: FREQUENCY : AS DIRECTED;?
     Route: 055
     Dates: start: 20220303

REACTIONS (2)
  - Treatment delayed [None]
  - Suicidal ideation [None]
